FAERS Safety Report 25456174 (Version 1)
Quarter: 2025Q2

REPORT INFORMATION
  Report Type: Report from Study
  Country: US (occurrence: US)
  Receive Date: 20250619
  Receipt Date: 20250619
  Transmission Date: 20250717
  Serious: Yes (Other)
  Sender: UCB
  Company Number: US-UCBSA-2025020335

PATIENT
  Age: 36 Year
  Sex: Male

DRUGS (1)
  1. CERTOLIZUMAB PEGOL [Suspect]
     Active Substance: CERTOLIZUMAB PEGOL
     Indication: Psoriatic arthropathy
     Dosage: 400 MILLIGRAM, EV 6 WEEKS
     Route: 058
     Dates: start: 20250312

REACTIONS (6)
  - Psoriatic arthropathy [Not Recovered/Not Resolved]
  - Nasal septal operation [Not Recovered/Not Resolved]
  - Injection site discharge [Not Recovered/Not Resolved]
  - Device issue [Unknown]
  - Product use issue [Unknown]
  - Intentional dose omission [Unknown]

NARRATIVE: CASE EVENT DATE: 20250312
